FAERS Safety Report 16671174 (Version 2)
Quarter: 2019Q3

REPORT INFORMATION
  Report Type: Spontaneous
  Country: ZA (occurrence: ZA)
  Receive Date: 20190805
  Receipt Date: 20190830
  Transmission Date: 20191004
  Serious: Yes (Other)
  Sender: FDA-Public Use
  Company Number: ZA-009507513-1908ZAF001499

PATIENT
  Sex: Female

DRUGS (1)
  1. FIDAXOMICIN [Suspect]
     Active Substance: FIDAXOMICIN
     Indication: CLOSTRIDIUM DIFFICILE COLITIS
     Dosage: UNK UNK, UNKNOWN
     Route: 065

REACTIONS (2)
  - Asthma [Unknown]
  - Clostridium difficile infection [Unknown]
